FAERS Safety Report 24053169 (Version 2)
Quarter: 2024Q3

REPORT INFORMATION
  Report Type: Report from Study
  Country: DE (occurrence: DE)
  Receive Date: 20240705
  Receipt Date: 20240705
  Transmission Date: 20241016
  Serious: Yes (Other)
  Sender: UCB
  Company Number: DE-UCBSA-2024030519

PATIENT
  Sex: Male
  Weight: 107 kg

DRUGS (1)
  1. BIMEKIZUMAB [Suspect]
     Active Substance: BIMEKIZUMAB
     Indication: Psoriasis
     Dosage: UNK
     Route: 058
     Dates: start: 20220915

REACTIONS (3)
  - Oesophageal candidiasis [Recovered/Resolved]
  - Dermatitis atopic [Recovered/Resolved]
  - Dysplastic naevus [Recovered/Resolved]

NARRATIVE: CASE EVENT DATE: 20221114
